FAERS Safety Report 15312588 (Version 1)
Quarter: 2018Q3

REPORT INFORMATION
  Report Type: Spontaneous
  Country: US (occurrence: US)
  Receive Date: 20180823
  Receipt Date: 20180823
  Transmission Date: 20181010
  Serious: No
  Sender: FDA-Public Use
  Company Number: US-SA-2018SA232270

PATIENT
  Age: 41 Year
  Sex: Male

DRUGS (1)
  1. TOUJEO [Suspect]
     Active Substance: INSULIN GLARGINE
     Indication: TYPE 1 DIABETES MELLITUS
     Dosage: 30UNITS/80UNITS
     Route: 065

REACTIONS (3)
  - Wrong technique in device usage process [Unknown]
  - Wrong schedule [Unknown]
  - Device operational issue [Unknown]
